FAERS Safety Report 25402715 (Version 1)
Quarter: 2025Q2

REPORT INFORMATION
  Report Type: Spontaneous
  Country: SE (occurrence: SE)
  Receive Date: 20250605
  Receipt Date: 20250605
  Transmission Date: 20250716
  Serious: Yes (Disabling)
  Sender: MYLAN
  Company Number: None

PATIENT
  Age: 24 Year
  Sex: Male
  Weight: 85 kg

DRUGS (4)
  1. SERTRALINE [Suspect]
     Active Substance: SERTRALINE HYDROCHLORIDE
     Indication: Anxiety
     Dosage: 12.5 MILLIGRAM, QD (1/2 TABLET)
     Dates: start: 20101201
  2. SERTRALINE [Suspect]
     Active Substance: SERTRALINE HYDROCHLORIDE
     Dosage: 12.5 MILLIGRAM, QD (1/2 TABLET)
     Route: 065
     Dates: start: 20101201
  3. SERTRALINE [Suspect]
     Active Substance: SERTRALINE HYDROCHLORIDE
     Dosage: 12.5 MILLIGRAM, QD (1/2 TABLET)
     Route: 065
     Dates: start: 20101201
  4. SERTRALINE [Suspect]
     Active Substance: SERTRALINE HYDROCHLORIDE
     Dosage: 12.5 MILLIGRAM, QD (1/2 TABLET)
     Dates: start: 20101201

REACTIONS (12)
  - Sleep disorder [Not Recovered/Not Resolved]
  - Blunted affect [Not Recovered/Not Resolved]
  - Anger [Recovering/Resolving]
  - Head discomfort [Not Recovered/Not Resolved]
  - Influenza like illness [Recovering/Resolving]
  - Paraesthesia [Recovering/Resolving]
  - Nightmare [Not Recovered/Not Resolved]
  - Erectile dysfunction [Not Recovered/Not Resolved]
  - Irritability [Recovering/Resolving]
  - Dizziness [Recovering/Resolving]
  - Anxiety [Not Recovered/Not Resolved]
  - Drug withdrawal syndrome [Recovering/Resolving]

NARRATIVE: CASE EVENT DATE: 20111101
